FAERS Safety Report 7290038-1 (Version None)
Quarter: 2011Q1

REPORT INFORMATION
  Report Type: 
  Country: None (occurrence: None)
  Receive Date: 20110209
  Receipt Date: 20110209
  Transmission Date: 20110831
  Serious: Yes (Other)
  Sender: FDA-Public Use
  Company Number: None

PATIENT
  Age: 63 Year
  Sex: Female

DRUGS (1)
  1. SEROQUEL [Suspect]
     Dates: start: 20090508, end: 20090516

REACTIONS (10)
  - DRUG INEFFECTIVE [None]
  - DECREASED APPETITE [None]
  - DEHYDRATION [None]
  - PYREXIA [None]
  - CHROMATURIA [None]
  - AUTOIMMUNE HEPATITIS [None]
  - TRANSAMINASES INCREASED [None]
  - BIOPSY LIVER ABNORMAL [None]
  - PANCYTOPENIA [None]
  - NAUSEA [None]
